FAERS Safety Report 11105417 (Version 1)
Quarter: 2015Q2

REPORT INFORMATION
  Report Type: Not Available
  Country: US (occurrence: US)
  Receive Date: 20150512
  Receipt Date: 20150512
  Transmission Date: 20150821
  Serious: No
  Sender: FDA-Public Use
  Company Number: US-LUPIN PHARMACEUTICALS INC.-E2B_00003366

PATIENT
  Age: 37 Year
  Sex: Female
  Weight: 53.12 kg

DRUGS (1)
  1. CEPHALEXIN CAPSULES USP 250 MG [Suspect]
     Active Substance: CEPHALEXIN
     Indication: PRODUCT USED FOR UNKNOWN INDICATION
     Dates: start: 201408

REACTIONS (1)
  - Abdominal discomfort [Unknown]
